FAERS Safety Report 5974811-5 (Version None)
Quarter: 2008Q4

REPORT INFORMATION
  Report Type: 
  Country: None (occurrence: None)
  Receive Date: 20081201
  Receipt Date: 20081127
  Transmission Date: 20090506
  Serious: Yes (Other)
  Sender: FDA-Public Use
  Company Number: GB-PFIZER INC-2008100600

PATIENT
  Sex: Female

DRUGS (4)
  1. PEGVISOMANT [Suspect]
     Indication: ACROMEGALY
     Route: 058
     Dates: start: 20081024, end: 20081024
  2. CITALOPRAM HYDROBROMIDE [Concomitant]
     Indication: DEPRESSION
     Route: 048
     Dates: start: 20080801
  3. CO-PHENOTROPE [Concomitant]
     Indication: IRRITABLE BOWEL SYNDROME
     Route: 048
     Dates: start: 20060101
  4. LORATADINE [Concomitant]
     Indication: HYPERSENSITIVITY
     Route: 048

REACTIONS (4)
  - DYSPNOEA [None]
  - LIP SWELLING [None]
  - RASH MACULO-PAPULAR [None]
  - WHEEZING [None]
